FAERS Safety Report 10235809 (Version 2)
Quarter: 2014Q4

REPORT INFORMATION
  Report Type: Spontaneous
  Country: US (occurrence: US)
  Receive Date: 20140613
  Receipt Date: 20141107
  Transmission Date: 20150528
  Serious: Yes (Hospitalization, Other)
  Sender: FDA-Public Use
  Company Number: US-009507513-1406USA007135

PATIENT
  Sex: Female
  Weight: 58.96 kg

DRUGS (1)
  1. NUVARING [Suspect]
     Active Substance: ETHINYL ESTRADIOL\ETONOGESTREL
     Indication: CONTRACEPTION
     Dosage: 0.120MG-0.015MG,
     Route: 067
     Dates: start: 20120521, end: 20120611

REACTIONS (7)
  - Deep vein thrombosis [Not Recovered/Not Resolved]
  - Arterial insufficiency [Unknown]
  - International normalised ratio increased [Unknown]
  - Phlebitis [Unknown]
  - Phlebectomy [Unknown]
  - Vena cava filter insertion [Unknown]
  - Pulmonary embolism [Not Recovered/Not Resolved]

NARRATIVE: CASE EVENT DATE: 20120601
